FAERS Safety Report 16632277 (Version 1)
Quarter: 2019Q3

REPORT INFORMATION
  Report Type: Spontaneous
  Country: US (occurrence: US)
  Receive Date: 20190725
  Receipt Date: 20190725
  Transmission Date: 20191004
  Serious: No
  Sender: FDA-Public Use
  Company Number: US-ABBVIE-18P-163-2503553-00

PATIENT
  Age: 74 Year
  Sex: Female

DRUGS (1)
  1. SYNTHROID [Suspect]
     Active Substance: LEVOTHYROXINE SODIUM
     Indication: AUTOIMMUNE THYROIDITIS
     Route: 048
     Dates: start: 2000

REACTIONS (5)
  - Madarosis [Unknown]
  - Feeling hot [Unknown]
  - Alopecia [Unknown]
  - Weight decreased [Unknown]
  - Palpitations [Unknown]

NARRATIVE: CASE EVENT DATE: 201805
